FAERS Safety Report 6675303-0 (Version None)
Quarter: 2010Q2

REPORT INFORMATION
  Report Type: 
  Country: None (occurrence: None)
  Receive Date: 20100409
  Receipt Date: 20100121
  Transmission Date: 20101027
  Serious: No
  Sender: FDA-Public Use
  Company Number: A0840727A

PATIENT
  Age: 72 Year
  Sex: Female

DRUGS (6)
  1. TYKERB [Suspect]
     Indication: BREAST CANCER
     Dosage: 4TAB PER DAY
     Route: 048
     Dates: start: 20091001
  2. XELODA [Suspect]
     Dosage: 2000MG PER DAY
     Dates: start: 20091001, end: 20100115
  3. THYROID MEDICATION [Concomitant]
  4. WARFARIN SODIUM [Concomitant]
  5. FUROSEMIDE [Concomitant]
  6. ALOE SUPPLEMENT [Concomitant]

REACTIONS (2)
  - ADVERSE EVENT [None]
  - EPISTAXIS [None]
